FAERS Safety Report 8590374-2 (Version None)
Quarter: 2012Q3

REPORT INFORMATION
  Report Type: 
  Country: None (occurrence: None)
  Receive Date: 20120813
  Receipt Date: 20120806
  Transmission Date: 20120928
  Serious: Yes (Hospitalization, Other)
  Sender: FDA-Public Use
  Company Number: PHHO2012JP002544

PATIENT
  Sex: Male

DRUGS (22)
  1. ALISKIREN [Suspect]
     Indication: CARDIAC FAILURE
     Dosage: UNK
     Route: 048
     Dates: start: 20100218, end: 20100303
  2. ENALAPRIL MALEATE [Suspect]
     Dosage: UNK
     Route: 048
     Dates: start: 20120215, end: 20120322
  3. ASPIRIN [Suspect]
     Dosage: 200 MG, UNK
     Route: 048
     Dates: start: 20110728
  4. ALISKIREN [Suspect]
     Dosage: UNK
     Route: 048
     Dates: start: 20100304, end: 20120202
  5. ENALAPRIL MALEATE [Suspect]
     Dosage: UNK
     Route: 048
     Dates: start: 20100304, end: 20120202
  6. ASPIRIN [Suspect]
     Dosage: 200 MG, UNK
     Route: 048
     Dates: start: 20110810, end: 20110818
  7. PULMICORT [Suspect]
     Dosage: UNK
     Dates: start: 20110915
  8. ENALAPRIL MALEATE [Suspect]
     Indication: CARDIAC FAILURE
     Dosage: UNK
     Route: 048
     Dates: start: 20100107, end: 20100303
  9. WARFARIN SODIUM [Suspect]
     Dosage: 3.5 MG, UNK
     Route: 048
     Dates: start: 20110827, end: 20110905
  10. ASPIRIN [Suspect]
     Indication: PROPHYLAXIS
     Dosage: 200 MG, UNK
     Route: 048
     Dates: start: 20080722
  11. ASPIRIN [Suspect]
     Dosage: 100 MG, UNK
     Route: 048
     Dates: start: 20111021
  12. LASIX [Suspect]
     Indication: CARDIAC FAILURE CHRONIC
     Dosage: 40 MG, UNK
     Route: 048
     Dates: start: 20080722
  13. ALISKIREN [Suspect]
     Dosage: UNK
     Route: 048
     Dates: start: 20120215, end: 20120322
  14. SLOW-K [Suspect]
     Indication: HYPOKALAEMIA
     Dosage: 600 MG, UNK
     Route: 048
     Dates: start: 20100916
  15. WARFARIN SODIUM [Suspect]
     Dosage: 3.5 MG, UNK
     Route: 048
     Dates: start: 20110428, end: 20110803
  16. WARFARIN SODIUM [Suspect]
     Dosage: 3.5 MG, UNK
     Route: 048
     Dates: start: 20110810, end: 20110821
  17. RABEPRAZOLE SODIUM [Suspect]
     Indication: PROPHYLAXIS
     Dosage: 10 MG, UNK
     Route: 048
     Dates: start: 20080722
  18. ALLOPURINOL [Suspect]
     Dosage: 200 MG, UNK
     Route: 048
     Dates: start: 20080918
  19. CARVEDILOL [Suspect]
     Indication: CARDIAC FAILURE CHRONIC
     Dosage: 10 MG, UNK
     Route: 048
     Dates: start: 20081211
  20. LIPITOR [Suspect]
     Dosage: 10 MG, UNK
     Route: 048
     Dates: start: 20080722
  21. SIGMART [Suspect]
     Indication: PROPHYLAXIS
     Dosage: 15 MG, UNK
     Route: 048
     Dates: start: 20080722
  22. WARFARIN SODIUM [Suspect]
     Dosage: 3.25 MG, UNK
     Route: 048
     Dates: start: 20110916

REACTIONS (4)
  - CEREBRAL INFARCTION [None]
  - HYPERKALAEMIA [None]
  - ASTHMA [None]
  - VENTRICULAR FIBRILLATION [None]
